FAERS Safety Report 6340079-3 (Version None)
Quarter: 2009Q3

REPORT INFORMATION
  Report Type: 
  Country: None (occurrence: None)
  Receive Date: 20090902
  Receipt Date: 20090818
  Transmission Date: 20100115
  Serious: Yes (Life-Threatening, Hospitalization)
  Sender: FDA-Public Use
  Company Number: TPH-00181

PATIENT
  Age: 28 Year
  Sex: Female

DRUGS (2)
  1. TRIVORA-28 [Suspect]
     Indication: CONTRACEPTION
     Dosage: 4 TABLETS AS A SINGLE DOSE, ORAL
     Route: 048
     Dates: start: 20040819, end: 20040819
  2. POLYGAM [Suspect]
     Indication: TOXIC EPIDERMAL NECROLYSIS
     Dosage: 0.5 G/KG
     Dates: start: 20040826, end: 20040828

REACTIONS (6)
  - CONJUNCTIVITIS [None]
  - DYSPNOEA [None]
  - DYSURIA [None]
  - PLEURAL EFFUSION [None]
  - TOXIC EPIDERMAL NECROLYSIS [None]
  - WHITE BLOOD CELL COUNT DECREASED [None]
